FAERS Safety Report 10137229 (Version 1)
Quarter: 2014Q2

REPORT INFORMATION
  Report Type: Spontaneous
  Country: US (occurrence: None)
  Receive Date: 20140428
  Receipt Date: 20140428
  Transmission Date: 20141212
  Serious: Yes (Other)
  Sender: FDA-Public Use
  Company Number: None

PATIENT
  Age: 44 Year
  Sex: Female
  Weight: 102.06 kg

DRUGS (1)
  1. KETOROLAC TROMETHAMINE [Suspect]
     Indication: ACCIDENT AT WORK
     Dosage: DOUBLE AS NEEDED INTO THE MUSCLE
     Route: 030
     Dates: start: 20140423, end: 20140423

REACTIONS (4)
  - Dizziness [None]
  - Hypersensitivity [None]
  - Complex partial seizures [None]
  - Reaction to drug excipients [None]
